FAERS Safety Report 8215033-7 (Version None)
Quarter: 2012Q1

REPORT INFORMATION
  Report Type: 
  Country: None (occurrence: None)
  Receive Date: 20120316
  Receipt Date: 20120309
  Transmission Date: 20120608
  Serious: Yes (Hospitalization)
  Sender: FDA-Public Use
  Company Number: US-B.I. PHARMACEUTICALS,INC./RIDGEFIELD-2012-BP-04537BP

PATIENT
  Age: 45 Year
  Sex: Male

DRUGS (2)
  1. AMIODARONE HYDROCHLORIDE [Concomitant]
  2. PRADAXA [Suspect]

REACTIONS (3)
  - ANAPHYLACTIC REACTION [None]
  - PULMONARY EMBOLISM [None]
  - TRANSIENT ISCHAEMIC ATTACK [None]
